FAERS Safety Report 13773081 (Version 1)
Quarter: 2017Q3

REPORT INFORMATION
  Report Type: Spontaneous
  Country: US (occurrence: US)
  Receive Date: 20170720
  Receipt Date: 20170720
  Transmission Date: 20171127
  Serious: Yes (Other)
  Sender: FDA-Public Use
  Company Number: US-PFIZER INC-2017307699

PATIENT
  Age: 49 Year
  Sex: Female
  Weight: 86.17 kg

DRUGS (8)
  1. BOTOX [Concomitant]
     Active Substance: ONABOTULINUMTOXINA
     Indication: MIGRAINE
     Dosage: 30 INJECTIONS, EVERY 3 MONTHS
     Dates: start: 201706
  2. SYNTHROID [Concomitant]
     Active Substance: LEVOTHYROXINE SODIUM
     Indication: HYPOTHYROIDISM
     Dosage: 137 UG, 1X/DAY
  3. PAROXETINE. [Concomitant]
     Active Substance: PAROXETINE
     Indication: MIGRAINE
     Dosage: 20 MG, 1X/DAY
  4. PANPROZOLE [Concomitant]
     Indication: GASTRIC DISORDER
     Dosage: 40 MG, 1X/DAY
  5. LEFLUNOMIDE. [Concomitant]
     Active Substance: LEFLUNOMIDE
     Indication: RHEUMATOID ARTHRITIS
     Dosage: 10 MG, 1X/DAY
     Dates: start: 201705
  6. ESTRADIOL. [Concomitant]
     Active Substance: ESTRADIOL
     Indication: HYSTERECTOMY
     Dosage: 2 MG, 1X/DAY
     Dates: start: 2014
  7. XELJANZ [Suspect]
     Active Substance: TOFACITINIB CITRATE
     Indication: RHEUMATOID ARTHRITIS
     Dosage: 5 MG, 2X/DAY
     Dates: end: 20170704
  8. TOPAMAX [Concomitant]
     Active Substance: TOPIRAMATE
     Indication: MIGRAINE
     Dosage: 150 MG, 2X/DAY

REACTIONS (2)
  - Exostosis [Not Recovered/Not Resolved]
  - Joint lock [Not Recovered/Not Resolved]
